FAERS Safety Report 9819553 (Version 1)
Quarter: 2014Q1

REPORT INFORMATION
  Report Type: Spontaneous
  Country: US (occurrence: None)
  Receive Date: 20140113
  Receipt Date: 20140113
  Transmission Date: 20141002
  Serious: Yes (Other)
  Sender: FDA-Public Use
  Company Number: 2013-US-002292

PATIENT
  Age: 22 Year
  Sex: Male
  Weight: 99.8 kg

DRUGS (9)
  1. XYREM (SODIUM OXYBATE) ORAL SOLUTION, 500 MG/ML [Suspect]
     Indication: NARCOLEPSY
     Dosage: 2.25 G, BID, ORAL
     Route: 048
     Dates: start: 201309
  2. ALBUTEROL (SALBUTAMOL SULFATE) [Concomitant]
  3. BUPROPION HCL (BUPROPION HYDROCHLORIDE) [Concomitant]
  4. CETIRIZINE (CETIRIZINE HYDROCHLORIDE) [Concomitant]
  5. CHOLECALCIFEROL (COLECALCIFEROL) [Concomitant]
  6. DESONIDE (DESONIDE) [Concomitant]
  7. FLUTICASONE (FLUTICASONE PROPIONATE) [Concomitant]
  8. MODAFINIL (MODAFINIL) [Concomitant]
  9. SERTRALINE (SERTRALINE HYDROCHLORIDE) [Concomitant]

REACTIONS (7)
  - Sleep apnoea syndrome [None]
  - Anal haemorrhage [None]
  - Condition aggravated [None]
  - Irritable bowel syndrome [None]
  - Periodic limb movement disorder [None]
  - Somnolence [None]
  - Faecal incontinence [None]
